FAERS Safety Report 14838055 (Version 6)
Quarter: 2019Q2

REPORT INFORMATION
  Report Type: Spontaneous
  Country: FR (occurrence: FR)
  Receive Date: 20180502
  Receipt Date: 20190531
  Transmission Date: 20190711
  Serious: Yes (Other)
  Sender: FDA-Public Use
  Company Number: FR-MYLANLABS-2018M1027374

PATIENT
  Age: 76 Year
  Sex: Male
  Weight: 67 kg

DRUGS (46)
  1. REVLIMID [Suspect]
     Active Substance: LENALIDOMIDE
     Dosage: 15 MILLIGRAM, Q28D
     Route: 048
     Dates: start: 20161025, end: 20161114
  2. VENLAFAXINE [Concomitant]
     Active Substance: VENLAFAXINE HYDROCHLORIDE
     Indication: DEPRESSION
     Dosage: 75 MILLIGRAM, QD
     Route: 048
     Dates: start: 20161020
  3. DEXAMETHASONE. [Suspect]
     Active Substance: DEXAMETHASONE
     Indication: PLASMA CELL MYELOMA
     Dosage: 20 MILLIGRAM, MONTHLY
     Route: 041
     Dates: start: 20171018, end: 20171018
  4. DEXAMETHASONE. [Suspect]
     Active Substance: DEXAMETHASONE
     Dosage: 40 MILLIGRAM, MONTHLY
     Route: 042
     Dates: start: 20171018, end: 20171018
  5. REVLIMID [Suspect]
     Active Substance: LENALIDOMIDE
     Dosage: 210 MILLIGRAM
     Route: 048
     Dates: start: 20161128, end: 20161218
  6. ENOXAPARINE SODIQUE [Concomitant]
     Active Substance: ENOXAPARIN SODIUM
     Indication: PROPHYLAXIS
     Dosage: 8000 INTERNATIONAL UNIT, QD (4000 IU)
     Route: 058
     Dates: start: 20171019
  7. LANSOPRAZOLE. [Concomitant]
     Active Substance: LANSOPRAZOLE
     Indication: GASTROOESOPHAGEAL REFLUX DISEASE
     Dosage: 15 MILLIGRAM, QD
     Route: 048
     Dates: start: 201309
  8. ZOLEDRONIC ACID [Concomitant]
     Active Substance: ZOLEDRONIC ACID
     Indication: PROPHYLAXIS
     Dosage: 4 MILLIGRAM, MONTHLY
     Route: 041
     Dates: start: 20160928
  9. BICARBONATE [Concomitant]
     Active Substance: SODIUM BICARBONATE
     Dosage: 250 MILLILITER, QD
     Route: 048
     Dates: start: 20161013
  10. REVLIMID [Suspect]
     Active Substance: LENALIDOMIDE
     Dosage: 10 MILLIGRAM, Q28D
     Route: 048
     Dates: start: 20161128, end: 20161218
  11. CARTEOLOL HYDROCHLORIDE. [Concomitant]
     Active Substance: CARTEOLOL HYDROCHLORIDE
     Indication: HYPERTONIA
     Dosage: 1 DOSAGE FORM, QD
     Route: 047
     Dates: start: 20160927
  12. CARTEOLOL HYDROCHLORIDE. [Concomitant]
     Active Substance: CARTEOLOL HYDROCHLORIDE
     Dosage: UNK
     Route: 047
  13. PARACETAMOL [Concomitant]
     Active Substance: ACETAMINOPHEN
     Indication: FRACTURE PAIN
     Dosage: UNK
     Route: 048
  14. DARATUMUMAB [Concomitant]
     Active Substance: DARATUMUMAB
     Dosage: 3504 MILLIGRAM, MONTHLY
     Route: 041
     Dates: start: 20160927, end: 20161011
  15. EPOETIN ALFA [Concomitant]
     Active Substance: ERYTHROPOIETIN
     Indication: ANAEMIA
     Dosage: 30000 INTERNATIONAL UNIT, QW
     Route: 058
     Dates: start: 20170808
  16. SITAGLIPTIN PHOSPHATE MONOHYDRATE [Concomitant]
     Active Substance: SITAGLIPTIN PHOSPHATE
     Indication: TYPE 2 DIABETES MELLITUS
     Dosage: 100 MILLIGRAM, QD
     Route: 048
     Dates: start: 2013
  17. TRAMADOL HCL [Concomitant]
     Active Substance: TRAMADOL HYDROCHLORIDE
     Indication: FRACTURE PAIN
     Dosage: 100 MILLIGRAM, QD
     Route: 048
     Dates: start: 20171019
  18. REVLIMID [Suspect]
     Active Substance: LENALIDOMIDE
     Indication: PLASMA CELL MYELOMA
     Dosage: 5 MILLIGRAM
     Route: 048
     Dates: start: 20160927, end: 20171107
  19. DARATUMUMAB [Concomitant]
     Active Substance: DARATUMUMAB
     Indication: PLASMA CELL MYELOMA
     Dosage: 1168 MILLIGRAM, MONTHLY
     Route: 041
     Dates: start: 20160927, end: 20171018
  20. VENOFER [Concomitant]
     Active Substance: IRON SUCROSE
     Indication: BLOOD IRON DECREASED
     Dosage: 40 MILLIGRAM, MONTHLY
     Route: 041
     Dates: start: 20161004
  21. REVLIMID [Suspect]
     Active Substance: LENALIDOMIDE
     Dosage: 5 MILLIGRAM, Q28D
     Route: 048
     Dates: start: 20171018, end: 20171019
  22. REVLIMID [Suspect]
     Active Substance: LENALIDOMIDE
     Dosage: 25 MILLIGRAM, Q28D
     Route: 048
     Dates: start: 20160927, end: 20171107
  23. REVLIMID [Suspect]
     Active Substance: LENALIDOMIDE
     Dosage: 315 MILLIGRAM
     Route: 048
     Dates: start: 20161025, end: 20161114
  24. REVLIMID [Suspect]
     Active Substance: LENALIDOMIDE
     Dosage: 525 MILLIGRAM
     Route: 048
     Dates: start: 20160927, end: 20171107
  25. AMOXICILLIN SODIUM [Concomitant]
     Active Substance: AMOXICILLIN SODIUM
     Indication: PROPHYLAXIS
     Dosage: 1000 MILLIGRAM, QD
     Route: 048
     Dates: start: 20161226
  26. MAGNESIUM [Concomitant]
     Active Substance: MAGNESIUM
     Indication: HYPOMAGNESAEMIA
     Dosage: 300 MILLIGRAM, QD
     Route: 048
     Dates: start: 20161212
  27. MAGNESIUM [Concomitant]
     Active Substance: MAGNESIUM
     Dosage: 100 MILLIGRAM, QD
     Route: 048
     Dates: start: 20161212
  28. DARATUMUMAB [Concomitant]
     Active Substance: DARATUMUMAB
     Dosage: 1168 MILLIGRAM, MONTHLY
     Route: 041
     Dates: start: 20171018, end: 20171018
  29. DARATUMUMAB [Concomitant]
     Active Substance: DARATUMUMAB
     Dosage: 3504 MILLIGRAM, MONTHLY
     Dates: start: 20171018, end: 20171018
  30. TRAMADOL. [Concomitant]
     Active Substance: TRAMADOL
     Indication: FRACTURE PAIN
     Dosage: 100 MILLIGRAM, QD
     Route: 058
     Dates: start: 20171019
  31. REVLIMID [Suspect]
     Active Substance: LENALIDOMIDE
     Dosage: 105 MILLIGRAM
     Route: 048
     Dates: start: 20160927, end: 20171107
  32. DEXAMETHASONE                      /00016005/ [Suspect]
     Active Substance: DEXAMETHASONE
     Dosage: 20 MILLIGRAM, MONTHLY
     Route: 048
     Dates: start: 20160927, end: 20161011
  33. RAMIPRIL. [Concomitant]
     Active Substance: RAMIPRIL
     Indication: RENAL FAILURE
     Dosage: 2.5 MILLIGRAM, QD
     Route: 048
     Dates: start: 201309
  34. PARACETAMOL [Concomitant]
     Active Substance: ACETAMINOPHEN
     Indication: ARTHRALGIA
     Dosage: 4 GRAM, QD
     Route: 048
     Dates: start: 20170320
  35. ENOXAPARINE SODIQUE [Concomitant]
     Active Substance: ENOXAPARIN SODIUM
     Dosage: 8000 IU (INTERNATIONAL UNIT)
     Route: 058
  36. ZOLPIDEM [Concomitant]
     Active Substance: ZOLPIDEM\ZOLPIDEM TARTRATE
     Indication: DEPRESSION
     Dosage: 10 MILLIGRAM, QD
     Route: 048
     Dates: start: 20170320
  37. SITAGLIPTINE [Concomitant]
     Active Substance: SITAGLIPTIN
     Indication: TYPE 2 DIABETES MELLITUS
     Dosage: 100 MG, QD
     Route: 058
     Dates: start: 2013
  38. LYSINE ASPIRIN [Concomitant]
     Active Substance: ASPIRIN DL-LYSINE
     Indication: THROMBOSIS PROPHYLAXIS
     Dosage: 75 MILLIGRAM, QD
     Route: 048
     Dates: start: 20161226
  39. DEXAMETHASONE                      /00016005/ [Suspect]
     Active Substance: DEXAMETHASONE
     Indication: PLASMA CELL MYELOMA
     Dosage: 40 MILLIGRAM, MONTHLY
     Route: 048
     Dates: start: 20160927, end: 20161011
  40. GLIMEPIRIDE. [Concomitant]
     Active Substance: GLIMEPIRIDE
     Indication: DIABETES MELLITUS
     Dosage: 4 GRAM, QD
     Route: 048
     Dates: start: 20170808
  41. VALACICLOVIR [Concomitant]
     Active Substance: VALACYCLOVIR HYDROCHLORIDE
     Indication: PROPHYLAXIS
     Dosage: 500 MILLIGRAM, QD
     Route: 048
     Dates: start: 20161005
  42. DARATUMUMAB [Concomitant]
     Active Substance: DARATUMUMAB
     Dosage: 1168 MILLIGRAM, MONTHLY
     Route: 041
     Dates: start: 20160927, end: 20161011
  43. AMOXICILLIN SODIUM W/CLAVULANATE POTASSIUM [Concomitant]
     Active Substance: AMOXICILLIN\CLAVULANATE POTASSIUM
     Indication: PROPHYLAXIS
     Dosage: 500 MILLIGRAM, QD (1000 MILLIGRAM)
     Route: 048
     Dates: start: 20161226
  44. ALPRAZOLAM. [Concomitant]
     Active Substance: ALPRAZOLAM
     Indication: DEPRESSION
     Dosage: 1 UNK, QD(1 OT)
     Route: 048
     Dates: start: 20161025
  45. BICARBONATE [Concomitant]
     Active Substance: SODIUM BICARBONATE
     Indication: STOMATITIS
     Dosage: 750 MILLILITER, QD
     Route: 048
     Dates: start: 20161013
  46. ATORVASTATIN [Concomitant]
     Active Substance: ATORVASTATIN
     Indication: HYPERCHOLESTEROLAEMIA
     Dosage: 10 MILLIGRAM, QD
     Route: 048

REACTIONS (2)
  - Rectosigmoid cancer [Not Recovered/Not Resolved]
  - Adenocarcinoma of colon [Recovered/Resolved]

NARRATIVE: CASE EVENT DATE: 20171124
